FAERS Safety Report 6431639-X (Version None)
Quarter: 2009Q4

REPORT INFORMATION
  Report Type: 
  Country: None (occurrence: None)
  Receive Date: 20091103
  Receipt Date: 20091019
  Transmission Date: 20100525
  Serious: Yes (Hospitalization)
  Sender: FDA-Public Use
  Company Number: 005258

PATIENT
  Age: 80 Year
  Sex: Male
  Weight: 62.6 kg

DRUGS (2)
  1. PLETAL [Suspect]
     Indication: CEREBRAL INFARCTION
     Dosage: 100 MG, BID, ORAL
     Route: 048
     Dates: start: 20060804, end: 20081017
  2. NORVASC [Suspect]
     Indication: HYPERTENSION
     Dosage: 5 MG, QAM, ORAL
     Route: 047

REACTIONS (1)
  - GASTRIC CANCER [None]
